FAERS Safety Report 7929216-4 (Version None)
Quarter: 2011Q4

REPORT INFORMATION
  Report Type: 
  Country: None (occurrence: None)
  Receive Date: 20111121
  Receipt Date: 20111111
  Transmission Date: 20120403
  Serious: Yes (Other)
  Sender: FDA-Public Use
  Company Number: US-BRISTOL-MYERS SQUIBB COMPANY-16194003

PATIENT
  Age: 84 Year
  Sex: Male

DRUGS (13)
  1. COQ10 [Concomitant]
  2. GLUCOSAMINE [Concomitant]
  3. CALCIUM [Concomitant]
  4. L-CARNITINE [Concomitant]
  5. ASCORBIC ACID [Concomitant]
  6. VITAMIN D [Concomitant]
  7. MICARDIS [Concomitant]
  8. VITAMIN E [Concomitant]
  9. HYDROCHLOROTHIAZIDE [Concomitant]
  10. FOLIC ACID [Concomitant]
  11. FISH OIL [Concomitant]
  12. COUMADIN [Suspect]
     Indication: PULMONARY EMBOLISM
     Dosage: FOR SEVERAL YEARS,1DF:24-25 MG
     Route: 048
  13. VITAMIN B1 TAB [Concomitant]

REACTIONS (3)
  - RECTAL HAEMORRHAGE [None]
  - INTERNATIONAL NORMALISED RATIO INCREASED [None]
  - DIVERTICULITIS [None]
